FAERS Safety Report 11909671 (Version 1)
Quarter: 2016Q1

REPORT INFORMATION
  Report Type: Spontaneous
  Country: US (occurrence: None)
  Receive Date: 20160108
  Receipt Date: 20160108
  Transmission Date: 20160526
  Serious: Yes (Other)
  Sender: FDA-Public Use
  Company Number: 15-121

PATIENT
  Age: 68 Year
  Sex: Female
  Weight: 61.24 kg

DRUGS (2)
  1. BENADRYL [Concomitant]
     Active Substance: DIPHENHYDRAMINE HYDROCHLORIDE
  2. ACETAMINOPHEN. [Suspect]
     Active Substance: ACETAMINOPHEN
     Indication: HEADACHE
     Route: 048
     Dates: start: 20151215

REACTIONS (4)
  - Seasonal allergy [None]
  - Ocular hyperaemia [None]
  - Eyelid oedema [None]
  - Eyelid pain [None]

NARRATIVE: CASE EVENT DATE: 20151215
